FAERS Safety Report 4299547-0 (Version None)
Quarter: 2004Q1

REPORT INFORMATION
  Report Type: 
  Country: None (occurrence: None)
  Receive Date: 20040217
  Receipt Date: 20040217
  Transmission Date: 20041129
  Serious: No
  Sender: FDA-Public Use
  Company Number: None

PATIENT
  Age: 56 Year
  Sex: Female
  Weight: 107.9561 kg

DRUGS (9)
  1. AVAPRO [Suspect]
     Indication: HYPERTENSION
     Dosage: 1 TAB PO QD
     Route: 048
     Dates: start: 20031120, end: 20031201
  2. ZITHROMAX [Suspect]
     Indication: BRONCHITIS
     Dosage: SEE IMAGE
     Route: 048
     Dates: start: 20031120, end: 20031201
  3. COUMADIN [Concomitant]
  4. CELEBREX [Concomitant]
  5. KCL TAB [Concomitant]
  6. ALPRAZOLAM [Concomitant]
  7. METOPROLOL [Concomitant]
  8. ZOCOR [Concomitant]
  9. ZYRTEC [Concomitant]

REACTIONS (9)
  - ANGIONEUROTIC OEDEMA [None]
  - ASTHMA [None]
  - COUGH [None]
  - EYE PRURITUS [None]
  - EYE SWELLING [None]
  - NASAL TURBINATE ABNORMALITY [None]
  - PHARYNGOLARYNGEAL PAIN [None]
  - RESPIRATORY DISORDER [None]
  - WHEEZING [None]
